FAERS Safety Report 11513513 (Version 3)
Quarter: 2016Q1

REPORT INFORMATION
  Report Type: Report from Study
  Country: US (occurrence: US)
  Receive Date: 20150916
  Receipt Date: 20160124
  Transmission Date: 20160525
  Serious: No
  Sender: FDA-Public Use
  Company Number: US-AMGEN-USASL2015094336

PATIENT
  Age: 57 Year
  Sex: Male

DRUGS (2)
  1. ENBREL [Suspect]
     Active Substance: ETANERCEPT
     Indication: PSORIATIC ARTHROPATHY
     Dosage: 50 MG, WEEKLY
     Route: 065
     Dates: start: 20150718
  2. NORCO [Suspect]
     Active Substance: ACETAMINOPHEN\HYDROCODONE BITARTRATE
     Indication: PRODUCT USED FOR UNKNOWN INDICATION
     Dosage: UNK
     Route: 065

REACTIONS (15)
  - Drug ineffective [Unknown]
  - Scar [Unknown]
  - Finger deformity [Recovering/Resolving]
  - Arthralgia [Unknown]
  - Fall [Unknown]
  - Skin fissures [Recovered/Resolved]
  - Peripheral swelling [Recovering/Resolving]
  - Limb injury [Recovered/Resolved]
  - Gait disturbance [Unknown]
  - Purulence [Unknown]
  - Scratch [Unknown]
  - Eye contusion [Unknown]
  - Eyelid injury [Unknown]
  - Paraesthesia [Unknown]
  - Joint range of motion decreased [Unknown]

NARRATIVE: CASE EVENT DATE: 2015
